FAERS Safety Report 21433588 (Version 3)
Quarter: 2022Q4

REPORT INFORMATION
  Report Type: Spontaneous
  Country: US (occurrence: US)
  Receive Date: 20221010
  Receipt Date: 20221114
  Transmission Date: 20230112
  Serious: Yes (Other)
  Sender: FDA-Public Use
  Company Number: US-ORGANON-O2210USA000314

PATIENT
  Age: 31 Year
  Sex: Female
  Weight: 85.261 kg

DRUGS (1)
  1. NEXPLANON [Suspect]
     Active Substance: ETONOGESTREL
     Indication: Contraception
     Dosage: 1 IMPLANT OF 68 MG (DURATION ALSO REPORTED AS 3 DAYS)
     Route: 059
     Dates: start: 20220923, end: 20220926

REACTIONS (5)
  - Device expulsion [Recovered/Resolved]
  - Limb discomfort [Unknown]
  - Pain in extremity [Unknown]
  - Implant site pain [Unknown]
  - Medical device site discomfort [Unknown]

NARRATIVE: CASE EVENT DATE: 20220901
